FAERS Safety Report 4952267-9 (Version None)
Quarter: 2006Q1

REPORT INFORMATION
  Report Type: 
  Country: None (occurrence: None)
  Receive Date: 20060310
  Receipt Date: 20060209
  Transmission Date: 20060701
  Serious: No
  Sender: FDA-Public Use
  Company Number: 200610028BBE

PATIENT
  Sex: Female

DRUGS (2)
  1. GAMASTAN [Suspect]
     Dosage: SEE IMAGE
     Route: 058
  2. GAMASTAN [Suspect]

REACTIONS (2)
  - NIGHT SWEATS [None]
  - PYREXIA [None]
